FAERS Safety Report 7472588-8 (Version None)
Quarter: 2011Q2

REPORT INFORMATION
  Report Type: 
  Country: None (occurrence: None)
  Receive Date: 20110502
  Receipt Date: 20110415
  Transmission Date: 20111010
  Serious: Yes (Hospitalization, Other)
  Sender: FDA-Public Use
  Company Number: 031298

PATIENT
  Sex: Male

DRUGS (15)
  1. DEPAKENE [Suspect]
     Dosage: SEE IMAGE
     Route: 042
     Dates: start: 20110221, end: 20110327
  2. DEPAKENE [Suspect]
     Dosage: SEE IMAGE
     Route: 042
     Dates: start: 20110207, end: 20110209
  3. DEPAKENE [Suspect]
     Dosage: SEE IMAGE
     Route: 042
     Dates: start: 20110210, end: 20110211
  4. DEPAKENE [Suspect]
     Dosage: SEE IMAGE
     Route: 042
     Dates: start: 20110212, end: 20110220
  5. DEPAKENE [Suspect]
     Dosage: SEE IMAGE
     Route: 042
     Dates: start: 20110328
  6. NEXIUM [Concomitant]
  7. LOVENOX [Suspect]
     Dosage: (0.4 ML QD SUBCUTANEOUS), (0.4 ML QD SUBCUTANEOUS)
     Route: 058
     Dates: start: 20110207, end: 20110221
  8. LOVENOX [Suspect]
     Dosage: (0.4 ML QD SUBCUTANEOUS), (0.4 ML QD SUBCUTANEOUS)
     Route: 058
     Dates: start: 20110310, end: 20110324
  9. LACOSAMIDE [Suspect]
     Dosage: (100 MG BID INTRAVENOUS (NOT OTHERWISE SPECIFIED)), (150 MG BID INTRAVENOUS (NOT OTHERWISE SPECIFIED
     Route: 042
     Dates: start: 20110324, end: 20110328
  10. LACOSAMIDE [Suspect]
     Dosage: (100 MG BID INTRAVENOUS (NOT OTHERWISE SPECIFIED)), (150 MG BID INTRAVENOUS (NOT OTHERWISE SPECIFIED
     Route: 042
     Dates: start: 20110317, end: 20110323
  11. ZYLORIC /00003301/ [Concomitant]
  12. COLCHICINE [Concomitant]
  13. CELECTOL [Concomitant]
  14. URBANYL [Concomitant]
  15. APROVEL [Concomitant]

REACTIONS (1)
  - THROMBOCYTOPENIA [None]
